FAERS Safety Report 7823874-0 (Version None)
Quarter: 2011Q4

REPORT INFORMATION
  Report Type: 
  Country: None (occurrence: None)
  Receive Date: 20111019
  Receipt Date: 20111006
  Transmission Date: 20120403
  Serious: Yes (Other)
  Sender: FDA-Public Use
  Company Number: US-JNJFOC-20111006428

PATIENT
  Sex: Male

DRUGS (1)
  1. TYLENOL COLD AND FLUE SEVERE NIGHTIME [Suspect]
     Indication: PRODUCT USED FOR UNKNOWN INDICATION
     Route: 048

REACTIONS (3)
  - HAEMOPTYSIS [None]
  - CHOKING [None]
  - DYSPNOEA [None]
